FAERS Safety Report 25502919 (Version 2)
Quarter: 2025Q3

REPORT INFORMATION
  Report Type: Spontaneous
  Country: JP (occurrence: JP)
  Receive Date: 20250702
  Receipt Date: 20250716
  Transmission Date: 20251021
  Serious: Yes (Death, Other)
  Sender: AMGEN
  Company Number: JP-DSJP-DS-2025-146107-

PATIENT
  Age: 72 Year
  Sex: Female
  Weight: 53 kg

DRUGS (16)
  1. BEVACIZUMAB [Suspect]
     Active Substance: BEVACIZUMAB
     Indication: Ovarian cancer
     Dosage: 640 MILLIGRAM, QD
     Route: 041
     Dates: start: 20250422, end: 20250603
  2. BEVACIZUMAB [Suspect]
     Active Substance: BEVACIZUMAB
     Indication: Fallopian tube cancer
  3. FILGRASTIM [Concomitant]
     Active Substance: FILGRASTIM
     Route: 065
     Dates: start: 20250609, end: 20250613
  4. CEFEPIME HYDROCHLORIDE [Concomitant]
     Active Substance: CEFEPIME HYDROCHLORIDE
     Dates: start: 20250609, end: 20250613
  5. OXYCODONE [Concomitant]
     Active Substance: OXYCODONE
     Dates: start: 20250609, end: 20250613
  6. NICARDIPINE HYDROCHLORIDE [Concomitant]
     Active Substance: NICARDIPINE HYDROCHLORIDE
     Dates: start: 20250604, end: 20250613
  7. MIDAZOLAM [Concomitant]
     Active Substance: MIDAZOLAM
     Dates: start: 20250612, end: 20250613
  8. CARVEDILOL [Concomitant]
     Active Substance: CARVEDILOL
     Dates: start: 20250605
  9. ABSTRAL [Concomitant]
     Active Substance: FENTANYL CITRATE
     Dates: start: 20250607
  10. PACLITAXEL [Concomitant]
     Active Substance: PACLITAXEL
     Indication: Fallopian tube cancer
     Dosage: 240 MILLIGRAM, QD
     Route: 065
     Dates: start: 20250603, end: 20250603
  11. PARAPLATIN [Concomitant]
     Active Substance: CARBOPLATIN
     Indication: Fallopian tube cancer
     Dosage: 360 MILLIGRAM, QD
     Route: 065
     Dates: start: 20250603, end: 20250603
  12. PALONOSETRON [Concomitant]
     Active Substance: PALONOSETRON
     Indication: Fallopian tube cancer
     Dosage: 0.75 MILLIGRAM, QD
     Route: 065
     Dates: start: 20250603, end: 20250603
  13. FAMOTIDINE [Concomitant]
     Active Substance: FAMOTIDINE
     Indication: Fallopian tube cancer
     Dosage: 20 MILLIGRAM, QD
     Route: 040
     Dates: start: 20250603, end: 20250603
  14. POLARAMINE [Concomitant]
     Active Substance: DEXCHLORPHENIRAMINE MALEATE
     Indication: Fallopian tube cancer
     Dosage: 5 MILLIGRAM, QD
     Dates: start: 20250603, end: 20250603
  15. DEXAMETHASONE SODIUM PHOSPHATE [Concomitant]
     Active Substance: DEXAMETHASONE SODIUM PHOSPHATE
     Indication: Fallopian tube cancer
     Dosage: 3 MILLIGRAM, QD
     Dates: start: 20250603, end: 20250603
  16. FOSNETUPITANT CHLORIDE HYDROCHLORIDE [Concomitant]
     Active Substance: FOSNETUPITANT CHLORIDE HYDROCHLORIDE
     Indication: Fallopian tube cancer
     Dosage: 235 MILLIGRAM, QD
     Dates: start: 20250603, end: 20250603

REACTIONS (1)
  - Aortic dissection [Fatal]

NARRATIVE: CASE EVENT DATE: 20250604
